FAERS Safety Report 18564070 (Version 1)
Quarter: 2020Q4

REPORT INFORMATION
  Report Type: Report from Study
  Country: IN (occurrence: IN)
  Receive Date: 20201201
  Receipt Date: 20201201
  Transmission Date: 20210114
  Serious: Yes (Other)
  Sender: FDA-Public Use
  Company Number: IN-NEXUS PHARMA-000023

PATIENT

DRUGS (3)
  1. ARSENIC [Suspect]
     Active Substance: ARSENIC
     Indication: ACUTE PROMYELOCYTIC LEUKAEMIA
     Dosage: FROM DAY 10
  2. DAUNORUBICIN [Suspect]
     Active Substance: DAUNORUBICIN
     Indication: ACUTE PROMYELOCYTIC LEUKAEMIA
     Dosage: 45 OR 60 MG/M2/D ONE TO FOUR DOSES
  3. TRETINOIN. [Suspect]
     Active Substance: TRETINOIN
     Indication: ACUTE PROMYELOCYTIC LEUKAEMIA
     Dosage: 45 MG/M2 OR 25 MG/M2) FROM DAY 1

REACTIONS (1)
  - Axonal neuropathy [Unknown]
